FAERS Safety Report 4469824-9 (Version None)
Quarter: 2004Q4

REPORT INFORMATION
  Report Type: 
  Country: None (occurrence: None)
  Receive Date: 20041008
  Receipt Date: 20030324
  Transmission Date: 20050328
  Serious: Yes (Other)
  Sender: FDA-Public Use
  Company Number: DE-GLAXOSMITHKLINE-D0040710A

PATIENT
  Age: 56 Year
  Sex: Female
  Weight: 92 kg

DRUGS (1)
  1. SEROXAT [Suspect]
     Indication: DEPRESSION
     Route: 048
     Dates: start: 20010120, end: 20030318

REACTIONS (10)
  - DIZZINESS [None]
  - DRUG WITHDRAWAL SYNDROME [None]
  - MUSCLE TWITCHING [None]
  - NAUSEA [None]
  - PARAESTHESIA [None]
  - RESTLESSNESS [None]
  - SENSORY DISTURBANCE [None]
  - SLEEP DISORDER [None]
  - TINNITUS [None]
  - WEIGHT INCREASED [None]
